FAERS Safety Report 21999771 (Version 1)
Quarter: 2023Q1

REPORT INFORMATION
  Report Type: Spontaneous
  Country: AU (occurrence: AU)
  Receive Date: 20230216
  Receipt Date: 20230216
  Transmission Date: 20230417
  Serious: Yes (Other)
  Sender: FDA-Public Use
  Company Number: AU-Waylis Therapeutics LLC-ATNAHS20230200491

PATIENT
  Age: 64 Year
  Sex: Female

DRUGS (2)
  1. VALIUM [Suspect]
     Active Substance: DIAZEPAM
     Indication: Product used for unknown indication
  2. MAYZENT [Suspect]
     Active Substance: SIPONIMOD
     Indication: Secondary progressive multiple sclerosis
     Route: 050
     Dates: start: 20211014

REACTIONS (16)
  - Multiple sclerosis relapse [Fatal]
  - Seizure [Fatal]
  - Condition aggravated [Fatal]
  - Confusional state [Fatal]
  - Fall [Fatal]
  - Hypertension [Fatal]
  - Malaise [Fatal]
  - Muscle spasms [Fatal]
  - Overdose [Fatal]
  - Pharyngeal ulceration [Fatal]
  - Product dose omission issue [Fatal]
  - Pyrexia [Fatal]
  - SARS-CoV-2 test positive [Fatal]
  - Tongue ulceration [Fatal]
  - Urinary tract infection [Fatal]
  - Vertigo [Fatal]
